FAERS Safety Report 20975718 (Version 3)
Quarter: 2022Q3

REPORT INFORMATION
  Report Type: Spontaneous
  Country: DE (occurrence: DE)
  Receive Date: 20220617
  Receipt Date: 20220701
  Transmission Date: 20221026
  Serious: No
  Sender: FDA-Public Use
  Company Number: DE-UCBSA-2022034828

PATIENT

DRUGS (1)
  1. NEUPRO [Suspect]
     Active Substance: ROTIGOTINE
     Indication: Product used for unknown indication
     Dosage: 2MG
     Route: 062

REACTIONS (1)
  - Product adhesion issue [Unknown]

NARRATIVE: CASE EVENT DATE: 20220401
